FAERS Safety Report 20546000 (Version 4)
Quarter: 2022Q3

REPORT INFORMATION
  Report Type: Spontaneous
  Country: JP (occurrence: JP)
  Receive Date: 20220303
  Receipt Date: 20220714
  Transmission Date: 20221027
  Serious: No
  Sender: FDA-Public Use
  Company Number: JP-GSKNCCC-Case-01432120_AE-55293

PATIENT

DRUGS (1)
  1. SOTROVIMAB [Suspect]
     Active Substance: SOTROVIMAB
     Indication: COVID-19
     Dosage: 500 MG/100 ML/30 MIN

REACTIONS (3)
  - Infusion site extravasation [Recovered/Resolved]
  - Swelling [Recovered/Resolved]
  - Infusion related reaction [Recovered/Resolved]
